FAERS Safety Report 13437362 (Version 2)
Quarter: 2018Q1

REPORT INFORMATION
  Report Type: Spontaneous
  Country: US (occurrence: US)
  Receive Date: 20170412
  Receipt Date: 20180330
  Transmission Date: 20180508
  Serious: No
  Sender: FDA-Public Use
  Company Number: US-SA-2016SA197412

PATIENT
  Age: 63 Year
  Sex: Female

DRUGS (3)
  1. ALLEGRA ALLERGY [Suspect]
     Active Substance: FEXOFENADINE HYDROCHLORIDE
     Indication: MULTIPLE ALLERGIES
     Route: 048
  2. VICKS [Concomitant]
  3. CLARITIN [Suspect]
     Active Substance: LORATADINE

REACTIONS (2)
  - Hepatic steatosis [Unknown]
  - Somnolence [Unknown]
